FAERS Safety Report 21739703 (Version 1)
Quarter: 2022Q4

REPORT INFORMATION
  Report Type: Report from Study
  Country: US (occurrence: US)
  Receive Date: 20221216
  Receipt Date: 20221216
  Transmission Date: 20230113
  Serious: No
  Sender: FDA-Public Use
  Company Number: US-ABBVIE-4233834

PATIENT
  Age: 45 Year
  Sex: Female

DRUGS (1)
  1. HUMIRA [Suspect]
     Active Substance: ADALIMUMAB
     Indication: Product used for unknown indication
     Route: 058

REACTIONS (5)
  - Abdominal pain [Recovering/Resolving]
  - Haematochezia [Unknown]
  - Device issue [Unknown]
  - Condition aggravated [Unknown]
  - Mucous stools [Unknown]

NARRATIVE: CASE EVENT DATE: 20221115
